FAERS Safety Report 9380399 (Version 1)
Quarter: 2013Q3

REPORT INFORMATION
  Report Type: Report from Study
  Country: IL (occurrence: IL)
  Receive Date: 20130702
  Receipt Date: 20130702
  Transmission Date: 20140515
  Serious: Yes (Other)
  Sender: FDA-Public Use
  Company Number: PHHY2013IL068264

PATIENT
  Sex: Female

DRUGS (1)
  1. GILENYA [Suspect]
     Indication: MULTIPLE SCLEROSIS
     Dosage: 0.5 MG, QD
     Route: 048
     Dates: start: 20110630

REACTIONS (5)
  - Convulsion [Unknown]
  - Loss of consciousness [Unknown]
  - Viral infection [Recovering/Resolving]
  - Asthenia [Unknown]
  - Pyrexia [Unknown]
